FAERS Safety Report 7489245-4 (Version None)
Quarter: 2011Q2

REPORT INFORMATION
  Report Type: 
  Country: None (occurrence: None)
  Receive Date: 20110518
  Receipt Date: 20110509
  Transmission Date: 20111010
  Serious: Yes (Other)
  Sender: FDA-Public Use
  Company Number: US-CEPHALON-2011002280

PATIENT
  Sex: Male

DRUGS (2)
  1. SEROQUEL [Suspect]
  2. NUVIGIL [Suspect]
     Route: 048

REACTIONS (1)
  - HALLUCINATION [None]
